FAERS Safety Report 23960666 (Version 1)
Quarter: 2024Q2

REPORT INFORMATION
  Report Type: Spontaneous
  Country: CA (occurrence: CA)
  Receive Date: 20240611
  Receipt Date: 20240611
  Transmission Date: 20240716
  Serious: Yes (Hospitalization, Other)
  Sender: FDA-Public Use
  Company Number: None

PATIENT
  Age: 74 Year
  Sex: Female
  Weight: 54 kg

DRUGS (14)
  1. CARBOPLATIN [Suspect]
     Active Substance: CARBOPLATIN
     Indication: Lymphoma
     Dosage: SOLUTION INTRAVENOUS
     Route: 065
  2. CISPLATIN [Suspect]
     Active Substance: CISPLATIN
     Indication: Lymphoma
     Route: 065
  3. CYCLOPHOSPHAMIDE [Suspect]
     Active Substance: CYCLOPHOSPHAMIDE
     Indication: Product used for unknown indication
     Route: 042
  4. FLUDARABINE [Suspect]
     Active Substance: FLUDARABINE PHOSPHATE
     Indication: Lymphodepletion
     Dosage: 25.0
     Route: 042
  5. GEMCITABINE [Suspect]
     Active Substance: GEMCITABINE
     Indication: Lymphoma
     Route: 065
  6. RITUXIMAB [Suspect]
     Active Substance: RITUXIMAB
     Indication: Lymphoma
     Route: 065
  7. DEXAMETHASONE [Suspect]
     Active Substance: DEXAMETHASONE
     Indication: Lymphoma
     Route: 065
  8. ETOPOSIDE [Suspect]
     Active Substance: ETOPOSIDE
     Indication: Lymphoma
     Route: 065
  9. IFOSFAMIDE [Suspect]
     Active Substance: IFOSFAMIDE
     Indication: Lymphoma
     Route: 065
  10. MELPHALAN [Suspect]
     Active Substance: MELPHALAN
     Indication: Lymphoma
     Route: 065
  11. MESNA [Suspect]
     Active Substance: MESNA
     Indication: Lymphoma
     Route: 065
  12. FLUDARABINE [Suspect]
     Active Substance: FLUDARABINE PHOSPHATE
     Indication: Lymphodepletion
     Route: 042
  13. CYCLOPHOSPHAMIDE [Suspect]
     Active Substance: CYCLOPHOSPHAMIDE
     Indication: Product used for unknown indication
     Route: 042
  14. FLUDARABINE [Suspect]
     Active Substance: FLUDARABINE PHOSPHATE
     Indication: Lymphodepletion
     Route: 042

REACTIONS (4)
  - COVID-19 pneumonia [Not Recovered/Not Resolved]
  - Cytopenia [Not Recovered/Not Resolved]
  - Myelodysplastic syndrome [Not Recovered/Not Resolved]
  - Pneumonia [Not Recovered/Not Resolved]
